FAERS Safety Report 10330986 (Version 1)
Quarter: 2014Q3

REPORT INFORMATION
  Report Type: Spontaneous
  Country: IE (occurrence: IE)
  Receive Date: 20140722
  Receipt Date: 20140722
  Transmission Date: 20150326
  Serious: Yes (Hospitalization)
  Sender: FDA-Public Use
  Company Number: IE-NAPPMUNDI-GBR-2014-0019471

PATIENT
  Age: 3 Year
  Sex: Male

DRUGS (1)
  1. BUTRANS [Suspect]
     Active Substance: BUPRENORPHINE
     Indication: PRODUCT USED FOR UNKNOWN INDICATION
     Route: 062

REACTIONS (3)
  - Accidental exposure to product by child [Recovered/Resolved]
  - Excessive eye blinking [Recovered/Resolved]
  - Facial spasm [Recovered/Resolved]
